FAERS Safety Report 24340731 (Version 1)
Quarter: 2024Q3

REPORT INFORMATION
  Report Type: Report from Study
  Country: US (occurrence: US)
  Receive Date: 20240919
  Receipt Date: 20240919
  Transmission Date: 20241016
  Serious: Yes (Other)
  Sender: ABBVIE
  Company Number: US-ABBVIE-5925374

PATIENT
  Sex: Female

DRUGS (1)
  1. SKYRIZI [Suspect]
     Active Substance: RISANKIZUMAB-RZAA
     Indication: Crohn^s disease
     Route: 058
     Dates: start: 20231113

REACTIONS (4)
  - Surgery [Unknown]
  - Post procedural inflammation [Not Recovered/Not Resolved]
  - Drug ineffective [Recovering/Resolving]
  - Diarrhoea [Recovering/Resolving]
